FAERS Safety Report 8139980-X (Version None)
Quarter: 2012Q1

REPORT INFORMATION
  Report Type: 
  Country: None (occurrence: None)
  Receive Date: 20120215
  Receipt Date: 20120207
  Transmission Date: 20120608
  Serious: Yes (Hospitalization, Disabling)
  Sender: FDA-Public Use
  Company Number: CA-MERCK-1108USA02801

PATIENT
  Age: 53 Year
  Sex: Female

DRUGS (9)
  1. BONIVA [Suspect]
     Indication: OSTEOPOROSIS
     Route: 048
     Dates: start: 20061001, end: 20090901
  2. BORON (UNSPECIFIED) [Concomitant]
     Route: 065
     Dates: start: 19950101
  3. FOSAMAX [Suspect]
     Route: 048
     Dates: start: 19960101, end: 20021101
  4. FOSAMAX [Suspect]
     Route: 048
     Dates: start: 20010101, end: 20061001
  5. VITAMINS (UNSPECIFIED) [Concomitant]
     Route: 065
     Dates: start: 19950101
  6. MAGNESIUM (UNSPECIFIED) [Concomitant]
     Route: 065
     Dates: start: 19950101
  7. OMEPRAZOLE [Concomitant]
     Route: 065
     Dates: start: 19940101
  8. FOSAMAX [Suspect]
     Indication: OSTEOPOROSIS
     Route: 048
     Dates: start: 19951101, end: 20010101
  9. PRILOSEC [Concomitant]
     Route: 065
     Dates: start: 19940101

REACTIONS (9)
  - OSTEOPENIA [None]
  - ADVERSE EVENT [None]
  - FEMUR FRACTURE [None]
  - OVARIAN DISORDER [None]
  - HYPERTENSION [None]
  - FALL [None]
  - FRACTURE DELAYED UNION [None]
  - LOW TURNOVER OSTEOPATHY [None]
  - HYPOTHYROIDISM [None]
